FAERS Safety Report 10012892 (Version 1)
Quarter: 2014Q1

REPORT INFORMATION
  Report Type: Spontaneous
  Country: FR (occurrence: FR)
  Receive Date: 20140314
  Receipt Date: 20140314
  Transmission Date: 20141002
  Serious: Yes (Other)
  Sender: FDA-Public Use
  Company Number: FR-PFIZER INC-2014072736

PATIENT
  Age: 55 Year
  Sex: Female

DRUGS (3)
  1. LYRICA [Suspect]
     Dosage: 25 MG, 2X/DAY
  2. LYRICA [Suspect]
     Dosage: 50 MG, 2X/DAY
  3. LYRICA [Suspect]
     Dosage: 75 MG, 2X/DAY

REACTIONS (7)
  - Intervertebral disc protrusion [Unknown]
  - Gait disturbance [Unknown]
  - Hypoaesthesia [Unknown]
  - Vision blurred [Unknown]
  - Neuralgia [Unknown]
  - Vascular pain [Unknown]
  - Drug ineffective [Unknown]
